FAERS Safety Report 10017253 (Version 1)
Quarter: 2014Q1

REPORT INFORMATION
  Report Type: Spontaneous
  Country: US (occurrence: None)
  Receive Date: 20140313
  Receipt Date: 20140313
  Transmission Date: 20141002
  Serious: Yes (Other)
  Sender: FDA-Public Use
  Company Number: None

PATIENT
  Age: 69 Year
  Sex: Male
  Weight: 90.72 kg

DRUGS (1)
  1. CVS HEADACHE RELIEF [Suspect]
     Indication: HEADACHE
     Dosage: 2 PILLS AS NEEDED.
     Dates: start: 20130914, end: 20140220

REACTIONS (2)
  - Drug ineffective [None]
  - Product quality issue [None]
